FAERS Safety Report 17354108 (Version 1)
Quarter: 2020Q1

REPORT INFORMATION
  Report Type: Spontaneous
  Country: US (occurrence: US)
  Receive Date: 20200115
  Receipt Date: 20200115
  Transmission Date: 20200409
  Serious: Yes (Death)
  Sender: FDA-Public Use
  Company Number: None

PATIENT
  Age: 45 Year
  Sex: Male
  Weight: 136.3 kg

DRUGS (5)
  1. ONCASPAR [Suspect]
     Active Substance: PEGASPARGASE
     Dates: end: 20190525
  2. VINCRISTINE SULFATE. [Suspect]
     Active Substance: VINCRISTINE SULFATE
     Dates: end: 20190529
  3. DAUNORUBICIN [Suspect]
     Active Substance: DAUNORUBICIN
     Dates: end: 20190529
  4. CYTARABINE. [Suspect]
     Active Substance: CYTARABINE
  5. METHOTREXATE. [Suspect]
     Active Substance: METHOTREXATE
     Dates: end: 20190521

REACTIONS (20)
  - Hepatitis acute [None]
  - Abdominal pain [None]
  - Hepatic encephalopathy [None]
  - Renal failure [None]
  - International normalised ratio increased [None]
  - Hyponatraemia [None]
  - Hepatorenal syndrome [None]
  - Blood culture positive [None]
  - Hepato-lenticular degeneration [None]
  - Hepatic fibrosis [None]
  - Oliguria [None]
  - Renal replacement therapy [None]
  - Hepatic failure [None]
  - Hepatic steatosis [None]
  - Drug-induced liver injury [None]
  - Hepatic cirrhosis [None]
  - Abdominal distension [None]
  - Portal hypertension [None]
  - Klebsiella bacteraemia [None]
  - Drug intolerance [None]

NARRATIVE: CASE EVENT DATE: 20190803
